FAERS Safety Report 6239683-2 (Version None)
Quarter: 2009Q2

REPORT INFORMATION
  Report Type: 
  Country: None (occurrence: None)
  Receive Date: 20090619
  Receipt Date: 20090607
  Transmission Date: 20091009
  Serious: Yes (Hospitalization)
  Sender: FDA-Public Use
  Company Number: 1-18747108

PATIENT
  Sex: Male

DRUGS (2)
  1. METRONIDAZOLE [Suspect]
     Indication: GIARDIASIS
     Dosage: ORAL
     Route: 048
  2. ORNIDAZOLE (MANUFACTURER UNKNOWN) [Suspect]
     Dosage: ORAL
     Route: 048

REACTIONS (3)
  - HAEMATOCRIT DECREASED [None]
  - HAEMOGLOBIN DECREASED [None]
  - PULMONARY ALVEOLAR HAEMORRHAGE [None]
